FAERS Safety Report 9750156 (Version 1)
Quarter: 2013Q4

REPORT INFORMATION
  Report Type: Spontaneous
  Country: GR (occurrence: GR)
  Receive Date: 20131212
  Receipt Date: 20131212
  Transmission Date: 20140711
  Serious: No
  Sender: FDA-Public Use
  Company Number: GR-GILEAD-GR-CVT-090830

PATIENT
  Age: 72 Year
  Sex: Male

DRUGS (5)
  1. OLMESARTAN [Concomitant]
     Indication: HYPERTENSION
  2. PANTOPRAZOLE [Concomitant]
     Indication: PROPHYLAXIS AGAINST GASTROINTESTINAL ULCER
  3. RANEXA [Suspect]
     Indication: CORONARY ARTERY DISEASE
     Route: 048
     Dates: start: 2009
  4. CLOPIDOGREL /01220701/ [Concomitant]
     Indication: CORONARY ARTERY DISEASE
  5. METOPROLOL                         /00376901/ [Concomitant]
     Indication: CORONARY ARTERY DISEASE

REACTIONS (1)
  - Nausea [Recovered/Resolved]
